FAERS Safety Report 7712905-4 (Version None)
Quarter: 2011Q3

REPORT INFORMATION
  Report Type: 
  Country: None (occurrence: None)
  Receive Date: 20110826
  Receipt Date: 20110818
  Transmission Date: 20111222
  Serious: Yes (Other)
  Sender: FDA-Public Use
  Company Number: PHHY2011US75015

PATIENT
  Age: 43 Year
  Sex: Male

DRUGS (4)
  1. CEFPODOXIME PROXETIL [Concomitant]
     Dosage: UNK UKN, UNK
  2. LOPERAMIDE HCL [Concomitant]
     Dosage: UNK UKN, UNK
  3. METRONIDAZOLE [Concomitant]
     Dosage: UNK UKN, UNK
  4. OCTREOTIDE ACETATE [Suspect]
     Dosage: UNK UKN, UNK

REACTIONS (3)
  - GASTROENTERITIS NOROVIRUS [None]
  - DIARRHOEA [None]
  - FREQUENT BOWEL MOVEMENTS [None]
